FAERS Safety Report 6223587-5 (Version None)
Quarter: 2009Q2

REPORT INFORMATION
  Report Type: 
  Country: None (occurrence: None)
  Receive Date: 20090610
  Receipt Date: 20090526
  Transmission Date: 20091009
  Serious: Yes (Death, Other)
  Sender: FDA-Public Use
  Company Number: 09-058

PATIENT
  Age: 48 Year
  Sex: Female

DRUGS (4)
  1. CEFEPIME [Suspect]
     Indication: BRONCHIECTASIS
     Dosage: 1 G X 2,
  2. CEFEPIME [Suspect]
     Indication: CONDITION AGGRAVATED
     Dosage: 1 G X 2,
  3. CIPROFLOXACIN [Suspect]
     Indication: BRONCHIECTASIS
     Dosage: 200 MG X 2,
  4. CIPROFLOXACIN [Suspect]
     Indication: CONDITION AGGRAVATED
     Dosage: 200 MG X 2,

REACTIONS (5)
  - AGITATION [None]
  - LOSS OF CONSCIOUSNESS [None]
  - SPEECH DISORDER [None]
  - STATUS EPILEPTICUS [None]
  - TREMOR [None]
